FAERS Safety Report 12203565 (Version 1)
Quarter: 2016Q1

REPORT INFORMATION
  Report Type: Spontaneous
  Country: IT (occurrence: IT)
  Receive Date: 20160323
  Receipt Date: 20160323
  Transmission Date: 20160526
  Serious: Yes (Hospitalization)
  Sender: FDA-Public Use
  Company Number: IT-ABBVIE-16K-083-1586212-00

PATIENT
  Age: 29 Year
  Sex: Female

DRUGS (1)
  1. HUMIRA [Suspect]
     Active Substance: ADALIMUMAB
     Indication: CROHN^S DISEASE
     Dosage: 1 UNIT
     Route: 058
     Dates: start: 20150929, end: 20160208

REACTIONS (6)
  - Paraesthesia [Recovering/Resolving]
  - Ocular dysmetria [Unknown]
  - Visual impairment [Recovering/Resolving]
  - Headache [Recovering/Resolving]
  - Abnormal sensation in eye [Unknown]
  - Eye pain [Unknown]

NARRATIVE: CASE EVENT DATE: 20160208
